FAERS Safety Report 4305794-1 (Version None)
Quarter: 2004Q1

REPORT INFORMATION
  Report Type: 
  Country: None (occurrence: None)
  Receive Date: 20040226
  Receipt Date: 20040226
  Transmission Date: 20041129
  Serious: Yes (Other)
  Sender: FDA-Public Use
  Company Number: None

PATIENT
  Age: 26 Year
  Sex: Male

DRUGS (1)
  1. PAROXETINE (PAR-MANUFACTURER) [Suspect]
     Dosage: 40 MG ONE DOSE PO QD
     Route: 048

REACTIONS (4)
  - AFFECTIVE DISORDER [None]
  - DRUG EFFECT DECREASED [None]
  - IRRITABILITY [None]
  - PHARMACEUTICAL PRODUCT COMPLAINT [None]
